FAERS Safety Report 10157638 (Version 2)
Quarter: 2014Q2

REPORT INFORMATION
  Report Type: Spontaneous
  Country: US (occurrence: US)
  Receive Date: 20140507
  Receipt Date: 20140507
  Transmission Date: 20141212
  Serious: No
  Sender: FDA-Public Use
  Company Number: US-BAXTER-2014BAX019828

PATIENT
  Sex: Female

DRUGS (2)
  1. DIANEAL LOW CALCIUM [Suspect]
     Indication: PERITONEAL DIALYSIS
     Route: 033
  2. DIANEAL LOW CALCIUM [Suspect]
     Indication: PERITONEAL DIALYSIS
     Route: 033

REACTIONS (7)
  - Nephrolithiasis [Unknown]
  - Mental impairment [Unknown]
  - Kidney infection [Recovering/Resolving]
  - Gastrointestinal disorder [Unknown]
  - Neuropathy peripheral [Recovering/Resolving]
  - Impaired gastric emptying [Recovering/Resolving]
  - Food intolerance [Recovering/Resolving]
